FAERS Safety Report 24748028 (Version 1)
Quarter: 2024Q4

REPORT INFORMATION
  Report Type: Spontaneous
  Country: IN (occurrence: IN)
  Receive Date: 20241218
  Receipt Date: 20241218
  Transmission Date: 20250115
  Serious: Yes (Hospitalization, Other)
  Sender: RANBAXY
  Company Number: IN-SUN PHARMACEUTICAL INDUSTRIES LTD.-2024R1-485008

PATIENT
  Age: 25 Year
  Sex: Female

DRUGS (3)
  1. PIROXICAM [Suspect]
     Active Substance: PIROXICAM
     Indication: Pain
     Dosage: 40 MILLIGRAM
     Route: 065
  2. TRAMADOL [Suspect]
     Active Substance: TRAMADOL
     Indication: Pain
     Dosage: 100 MILLIGRAM
     Route: 065
  3. ACETAMINOPHEN [Suspect]
     Active Substance: ACETAMINOPHEN
     Indication: Pain
     Dosage: 1 GRAM
     Route: 065

REACTIONS (1)
  - Therapy non-responder [Unknown]
